FAERS Safety Report 12463535 (Version 2)
Quarter: 2017Q1

REPORT INFORMATION
  Report Type: Report from Study
  Country: BR (occurrence: BR)
  Receive Date: 20160614
  Receipt Date: 20170223
  Transmission Date: 20170428
  Serious: Yes (Other)
  Sender: FDA-Public Use
  Company Number: BR-ROCHE-1173297

PATIENT
  Sex: Female
  Weight: 58 kg

DRUGS (9)
  1. RIVOTRIL [Concomitant]
     Active Substance: CLONAZEPAM
  2. PARACETAMOL [Concomitant]
     Active Substance: ACETAMINOPHEN
  3. OMEGA 3 [Concomitant]
     Active Substance: OMEGA-3 FATTY ACIDS
  4. PANTOPRAZOLE [Concomitant]
     Active Substance: PANTOPRAZOLE SODIUM
  5. SALINE [Concomitant]
     Active Substance: SODIUM CHLORIDE
     Indication: PREMEDICATION
  6. NEXIUM [Concomitant]
     Active Substance: ESOMEPRAZOLE MAGNESIUM
     Route: 065
  7. SYNTHROID [Concomitant]
     Active Substance: LEVOTHYROXINE SODIUM
     Route: 065
  8. IMOSEC [Concomitant]
     Active Substance: LOPERAMIDE
  9. MABTHERA [Suspect]
     Active Substance: RITUXIMAB
     Indication: RHEUMATOID ARTHRITIS
     Dosage: MOST RECENT INFUSION RECEIVED ON 21/AUG/2016
     Route: 042
     Dates: start: 20121219

REACTIONS (17)
  - Cough [Unknown]
  - Dizziness [Not Recovered/Not Resolved]
  - Memory impairment [Not Recovered/Not Resolved]
  - Nausea [Unknown]
  - Dyspnoea [Unknown]
  - Pharyngeal disorder [Unknown]
  - Erythema [Unknown]
  - Sneezing [Unknown]
  - Sluggishness [Unknown]
  - Skin plaque [Unknown]
  - Musculoskeletal pain [Unknown]
  - Pain in extremity [Unknown]
  - Tooth disorder [Recovered/Resolved]
  - Influenza [Unknown]
  - Pulmonary fistula [Recovering/Resolving]
  - Hiccups [Unknown]
  - Lung infection [Unknown]

NARRATIVE: CASE EVENT DATE: 2015
